FAERS Safety Report 8266921-7 (Version None)
Quarter: 2012Q2

REPORT INFORMATION
  Report Type: 
  Country: None (occurrence: None)
  Receive Date: 20120404
  Receipt Date: 20120404
  Transmission Date: 20120825
  Serious: Yes (Hospitalization)
  Sender: FDA-Public Use
  Company Number: None

PATIENT
  Age: 61 Year
  Sex: Male
  Weight: 103.4 kg

DRUGS (1)
  1. INFLIXIMAB [Suspect]
     Indication: RHEUMATOID ARTHRITIS
     Dosage: 310 MG ONCE IV
     Route: 042
     Dates: start: 20111117, end: 20111117

REACTIONS (11)
  - PALPITATIONS [None]
  - CHEST PAIN [None]
  - DRUG HYPERSENSITIVITY [None]
  - URTICARIA [None]
  - INFUSION RELATED REACTION [None]
  - FLUSHING [None]
  - HYPOTENSION [None]
  - PRURITUS [None]
  - PHARYNGEAL OEDEMA [None]
  - NAUSEA [None]
  - VOMITING [None]
